FAERS Safety Report 23543155 (Version 1)
Quarter: 2024Q1

REPORT INFORMATION
  Report Type: Spontaneous
  Country: JP (occurrence: JP)
  Receive Date: 20240220
  Receipt Date: 20240220
  Transmission Date: 20240409
  Serious: Yes (Hospitalization, Other)
  Sender: FDA-Public Use
  Company Number: JP-ASTELLAS-2024JP000168

PATIENT
  Age: 10 Month
  Sex: Female

DRUGS (3)
  1. PROGRAF [Suspect]
     Active Substance: TACROLIMUS
     Indication: Liver transplant rejection
     Route: 041
     Dates: start: 20240104
  2. PROGRAF [Suspect]
     Active Substance: TACROLIMUS
     Dosage: 0.8 MG, UNKNOWN FREQ.
     Route: 041
     Dates: start: 20240125
  3. PROGRAF [Suspect]
     Active Substance: TACROLIMUS
     Dosage: 0.9 MG, UNKNOWN FREQ.
     Route: 041
     Dates: start: 20240201

REACTIONS (3)
  - Ascites [Recovering/Resolving]
  - Pericardial effusion [Recovering/Resolving]
  - Drug level increased [Recovered/Resolved]

NARRATIVE: CASE EVENT DATE: 20240125
